FAERS Safety Report 8003684-4 (Version None)
Quarter: 2011Q4

REPORT INFORMATION
  Report Type: 
  Country: None (occurrence: None)
  Receive Date: 20111222
  Receipt Date: 20111215
  Transmission Date: 20120403
  Serious: Yes (Other)
  Sender: FDA-Public Use
  Company Number: US-ABBOTT-11P-163-0884055-00

PATIENT
  Sex: Female
  Weight: 102.15 kg

DRUGS (15)
  1. DUREZOL [Concomitant]
     Dates: start: 20111208
  2. METFORMIN HCL [Concomitant]
     Indication: BLOOD GLUCOSE ABNORMAL
  3. NORVASC [Concomitant]
     Indication: BLOOD PRESSURE
  4. AMITRIPTYLINE HCL [Concomitant]
     Indication: CYSTITIS
  5. DUREZOL [Concomitant]
     Indication: PRODUCT USED FOR UNKNOWN INDICATION
     Dosage: EYE DROPS, ONCE EVERY THREE HOURS
     Dates: start: 20111001, end: 20111101
  6. JANUVIA [Concomitant]
     Indication: BLOOD GLUCOSE ABNORMAL
     Dosage: ONCE DAILY, IN THE MORNING
  7. AMBIEN [Concomitant]
     Indication: INSOMNIA
     Dosage: ONCE DAILY AT BEDTIME AS NEEDED
  8. HUMIRA [Suspect]
     Indication: ANKYLOSING SPONDYLITIS
     Dates: start: 20110919, end: 20111001
  9. MOBIC [Concomitant]
     Indication: ARTHRITIS
     Dosage: ONCE DAILY AT NOON
  10. HUMIRA [Suspect]
     Dates: start: 20111001
  11. LISINOPRIL [Concomitant]
     Indication: BLOOD PRESSURE
  12. GLUCATROL [Concomitant]
     Indication: BLOOD GLUCOSE ABNORMAL
  13. PROZAC [Concomitant]
     Indication: DEPRESSION
  14. MICRODANTIN [Concomitant]
     Indication: CYSTITIS INTERSTITIAL
  15. PRILOSEC [Concomitant]
     Indication: PRODUCT USED FOR UNKNOWN INDICATION
     Dosage: OTC, ONE DAILY

REACTIONS (7)
  - OCULAR HYPERAEMIA [None]
  - EYE INFLAMMATION [None]
  - UVEITIS [None]
  - EYE PAIN [None]
  - BLINDNESS UNILATERAL [None]
  - ABNORMAL SENSATION IN EYE [None]
  - BLINDNESS TRANSIENT [None]
